FAERS Safety Report 6222844-6 (Version None)
Quarter: 2009Q2

REPORT INFORMATION
  Report Type: 
  Country: None (occurrence: None)
  Receive Date: 20090609
  Receipt Date: 20090526
  Transmission Date: 20091009
  Serious: Yes (Hospitalization, Other)
  Sender: FDA-Public Use
  Company Number: FR-WYE-H09437709

PATIENT
  Age: 82 Year
  Sex: Female

DRUGS (3)
  1. INIPOMP (PANTOPRAZOLE, TABLET, DELAYED RELEASE) [Suspect]
     Dates: end: 20090101
  2. ACLASTA (ZOLEDRONIC ACID,) [Suspect]
     Dosage: 0.0137 MG 1 X 1 DAY INTRAVENOUS
     Route: 042
     Dates: start: 20090101, end: 20090101
  3. VISKEN [Suspect]
     Dates: end: 20090101

REACTIONS (5)
  - CARDIAC FAILURE [None]
  - CARDIAC TAMPONADE [None]
  - DISSEMINATED INTRAVASCULAR COAGULATION [None]
  - PERICARDIAL EFFUSION [None]
  - PLEURAL EFFUSION [None]
